FAERS Safety Report 7485229-0 (Version None)
Quarter: 2011Q2

REPORT INFORMATION
  Report Type: 
  Country: None (occurrence: None)
  Receive Date: 20110517
  Receipt Date: 20110510
  Transmission Date: 20111010
  Serious: Yes (Hospitalization)
  Sender: FDA-Public Use
  Company Number: ES-AMGEN-UK358898

PATIENT
  Age: 59 Year
  Sex: Male

DRUGS (17)
  1. NYSTATIN [Concomitant]
     Dosage: UNK UNK, TID
     Route: 048
  2. OMEPRAZOLE [Concomitant]
     Dosage: 40 MG, Q12H
     Route: 065
     Dates: start: 20090804, end: 20090805
  3. FLUCONAZOLE [Concomitant]
     Dosage: 100 MG, Q4H
     Route: 042
     Dates: start: 20090804
  4. PANITUMUMAB [Suspect]
     Indication: SQUAMOUS CELL CARCINOMA
     Dosage: 576 MG, Q3WK
     Route: 042
     Dates: start: 20090708
  5. ACETAMINOPHEN [Concomitant]
     Dosage: 1 G, QD
     Route: 065
  6. PIPERACILLIN AND TAZOBACTAM [Concomitant]
     Dosage: 4 G, Q8H
     Route: 042
     Dates: start: 20090804, end: 20090810
  7. PANTOPRAZOLE [Concomitant]
     Dosage: 40 MG, Q12H
     Dates: start: 20090805, end: 20090808
  8. RADIATION THERAPY [Concomitant]
     Dosage: UNK UNK, UNK
     Route: 050
     Dates: start: 20090708, end: 20090802
  9. DEXCHLORPHENIRAMINE MALEATE [Concomitant]
     Dosage: 2 MG, Q8H
     Dates: start: 20090805
  10. CALCIUM [Concomitant]
     Dosage: UNK UNK, Q12H
     Dates: start: 20090812
  11. VALACICLOVIR [Concomitant]
     Dosage: 1 G, QD
     Dates: start: 20090812, end: 20090822
  12. LIDOCAINE [Concomitant]
     Dosage: 100 ML, TID
     Route: 048
     Dates: start: 20090805
  13. METAMIZOLE [Concomitant]
     Dosage: 2 G, Q8H
     Route: 042
     Dates: start: 20090805
  14. DEXAMETHASONE [Concomitant]
     Dosage: 2 MG, Q8H
     Dates: start: 20090805, end: 20090808
  15. BISOPROLOL FUMARATE [Concomitant]
     Dosage: 5 MG, QD
     Route: 065
  16. ENOXAPARIN [Concomitant]
     Dosage: 40 MG, UNK
     Route: 058
     Dates: start: 20090805, end: 20090810
  17. TRIMETHOPRIM + SULFAMETHOXAZOLE [Concomitant]
     Dosage: UNK UNK, Q12H
     Dates: start: 20090812, end: 20090822

REACTIONS (3)
  - INFLAMMATION [None]
  - SKIN INFECTION [None]
  - MUCOSAL INFLAMMATION [None]
